FAERS Safety Report 5636960-0 (Version None)
Quarter: 2008Q1

REPORT INFORMATION
  Report Type: 
  Country: None (occurrence: None)
  Receive Date: 20080225
  Receipt Date: 20070119
  Transmission Date: 20080703
  Serious: No
  Sender: FDA-Public Use
  Company Number: US-BRISTOL-MYERS SQUIBB COMPANY-13669676

PATIENT
  Age: 42 Year
  Sex: Female
  Weight: 83 kg

DRUGS (3)
  1. GLUCOPHAGE [Suspect]
     Dates: start: 20061201
  2. BYETTA [Suspect]
     Indication: TYPE 2 DIABETES MELLITUS
     Dosage: INTIAL:BYETTA;5MCG;BID;SC
     Route: 058
     Dates: start: 20060101
  3. METFORMIN HCL [Concomitant]
     Dates: start: 20061201

REACTIONS (4)
  - ANOREXIA [None]
  - BLOOD GLUCOSE INCREASED [None]
  - FATIGUE [None]
  - WEIGHT DECREASED [None]
